FAERS Safety Report 17430478 (Version 1)
Quarter: 2020Q1

REPORT INFORMATION
  Report Type: Spontaneous
  Country: US (occurrence: US)
  Receive Date: 20200218
  Receipt Date: 20200218
  Transmission Date: 20200409
  Serious: No
  Sender: FDA-Public Use
  Company Number: US-PERRIGO-19US006070

PATIENT
  Sex: Female
  Weight: 63.49 kg

DRUGS (5)
  1. DESONIDE. [Suspect]
     Active Substance: DESONIDE
     Indication: RASH
     Dosage: UNKNOWN, UNKNOWN
     Route: 061
     Dates: start: 201606, end: 2016
  2. MULTIVITAMINS, PLAIN [Concomitant]
     Active Substance: VITAMINS
     Indication: SUPPLEMENTATION THERAPY
     Dosage: UNK
     Route: 065
  3. DESONIDE. [Suspect]
     Active Substance: DESONIDE
     Dosage: SMALL AMOUNT, 2 TO 3 TIMES
     Route: 061
     Dates: start: 201905, end: 201905
  4. VITAMIN C [Concomitant]
     Active Substance: ASCORBIC ACID
     Indication: SUPPLEMENTATION THERAPY
     Dosage: UNK
     Route: 065
  5. FISH OIL [Concomitant]
     Active Substance: FISH OIL
     Indication: SUPPLEMENTATION THERAPY
     Dosage: UNK
     Route: 065

REACTIONS (2)
  - Expired product administered [Recovered/Resolved]
  - Condition aggravated [Recovered/Resolved]

NARRATIVE: CASE EVENT DATE: 2016
